FAERS Safety Report 11917204 (Version 2)
Quarter: 2016Q1

REPORT INFORMATION
  Report Type: Spontaneous
  Country: NL (occurrence: NL)
  Receive Date: 20160114
  Receipt Date: 20160307
  Transmission Date: 20160526
  Serious: Yes (Other)
  Sender: FDA-Public Use
  Company Number: NL-SA-2016SA003914

PATIENT
  Age: 75 Year
  Sex: Female
  Weight: 130 kg

DRUGS (9)
  1. TOUJEO [Suspect]
     Active Substance: INSULIN GLARGINE
     Indication: DIABETES MELLITUS
     Dosage: DOSE:80 UNIT(S)
     Route: 058
     Dates: start: 20150619
  2. METFORMIN [Concomitant]
     Active Substance: METFORMIN HYDROCHLORIDE
     Dosage: STRENGTH: 500 MG
     Route: 048
  3. HUMALOG KWIKPEN [Concomitant]
     Active Substance: INSULIN LISPRO
     Dosage: STRENGTH: 100E/ML PEN 3ML?VV
     Route: 058
  4. LANTUS [Concomitant]
     Active Substance: INSULIN GLARGINE
  5. SIMVASTATIN. [Concomitant]
     Active Substance: SIMVASTATIN
     Dosage: STRENGTH: 40 MG
     Route: 048
  6. DERMOVATE [Concomitant]
     Active Substance: CLOBETASOL
     Dosage: STRENGTH: 0.005%?2
     Route: 003
  7. KWIKPEN [Concomitant]
  8. SOLOSTAR [Concomitant]
     Active Substance: DEVICE
     Indication: DIABETES MELLITUS
     Dates: start: 20150619
  9. PANTOPRAZOL [Concomitant]
     Active Substance: PANTOPRAZOLE SODIUM
     Dosage: STRENGTH: 20 MG
     Route: 048

REACTIONS (6)
  - Oedema peripheral [Recovered/Resolved]
  - Oedema peripheral [Not Recovered/Not Resolved]
  - Pulmonary oedema [Recovered/Resolved]
  - Fluid retention [Unknown]
  - Weight increased [Unknown]
  - Dyspnoea [Not Recovered/Not Resolved]

NARRATIVE: CASE EVENT DATE: 2015
